FAERS Safety Report 9084684 (Version 2)
Quarter: 2013Q2

REPORT INFORMATION
  Report Type: Report from Study
  Country: HU (occurrence: HU)
  Receive Date: 20130129
  Receipt Date: 20130401
  Transmission Date: 20140414
  Serious: Yes (Other)
  Sender: FDA-Public Use
  Company Number: PHHY2013HU006651

PATIENT
  Age: 57 Year
  Sex: Female

DRUGS (1)
  1. CGS 20267 [Suspect]
     Indication: BREAST CANCER STAGE III
     Dosage: 2.5 MG, ONCE A DAY
     Route: 048
     Dates: end: 201011

REACTIONS (5)
  - Haematemesis [Unknown]
  - Ascites [Unknown]
  - Invasive ductal breast carcinoma [Unknown]
  - Malignant neoplasm progression [Unknown]
  - Abdominal pain [Unknown]
